FAERS Safety Report 5715804-2 (Version None)
Quarter: 2008Q2

REPORT INFORMATION
  Report Type: 
  Country: None (occurrence: None)
  Receive Date: 20080424
  Receipt Date: 20080421
  Transmission Date: 20081010
  Serious: Yes (Hospitalization)
  Sender: FDA-Public Use
  Company Number: ES-BRISTOL-MYERS SQUIBB COMPANY-14160758

PATIENT
  Age: 53 Year
  Sex: Female

DRUGS (5)
  1. APROVEL FILM-COATED TABS 75 MG [Suspect]
     Indication: HYPERTENSION
     Dosage: 28 COATED TABLETS 300 MG STOPPED 09FEB08 ALSO TAKEN 150 MG OD (06-FEB-08 TO 16-FEB-08)
     Route: 048
     Dates: end: 20080209
  2. AMERIDE TABS 5 MG/50 MG [Suspect]
     Indication: HYPERTENSION
     Dosage: 1 DOSAGE FORM= TABLETS
     Route: 048
     Dates: end: 20080216
  3. TROMALYT [Suspect]
     Indication: ISCHAEMIC CARDIOMYOPATHY
     Dosage: TROMALYT 150, 28 CAPSULES
     Route: 048
     Dates: end: 20080216
  4. PREVENCOR [Concomitant]
     Indication: HYPERLIPIDAEMIA
     Dosage: 10 MG FILM-COATED 28 TABLETS
     Route: 048
  5. METFORMIN HCL [Concomitant]
     Indication: DIABETES MELLITUS
     Dosage: TOTAL DAILY DOSE: 2550 MG
     Route: 048

REACTIONS (2)
  - HYPERKALAEMIA [None]
  - RENAL FAILURE ACUTE [None]
